FAERS Safety Report 11819621 (Version 4)
Quarter: 2017Q4

REPORT INFORMATION
  Report Type: Spontaneous
  Country: US (occurrence: US)
  Receive Date: 20151210
  Receipt Date: 20171108
  Transmission Date: 20180320
  Serious: Yes (Other)
  Sender: FDA-Public Use
  Company Number: US-JNJFOC-20151008467

PATIENT
  Age: 30 Year
  Sex: Male

DRUGS (7)
  1. RISPERDAL [Suspect]
     Active Substance: RISPERIDONE
     Indication: MENTAL DISORDER
     Dosage: VARYING DOSE 1,2 AND 3 MG
     Route: 048
     Dates: start: 20050220, end: 20050824
  2. INVEGA [Suspect]
     Active Substance: PALIPERIDONE
     Indication: MENTAL DISORDER
     Dosage: VARYING DOSES OF 03 AND 06 MG
     Route: 048
     Dates: start: 2011
  3. RISPERDAL [Suspect]
     Active Substance: RISPERIDONE
     Indication: MENTAL DISORDER
     Dosage: VARYING DOSE OF 01, 02 AND 03 MG
     Route: 048
     Dates: start: 200502, end: 200807
  4. INVEGA [Suspect]
     Active Substance: PALIPERIDONE
     Indication: MENTAL DISORDER
     Dosage: VARYING DOSE 3 MG , 6 MG
     Route: 048
     Dates: start: 20080103, end: 20080724
  5. RISPERDAL [Suspect]
     Active Substance: RISPERIDONE
     Indication: MENTAL DISORDER
     Route: 048
     Dates: start: 20051024, end: 20051116
  6. SEROQUEL [Suspect]
     Active Substance: QUETIAPINE FUMARATE
     Indication: PRODUCT USED FOR UNKNOWN INDICATION
     Route: 065
     Dates: start: 20040226, end: 20060222
  7. INVEGA [Suspect]
     Active Substance: PALIPERIDONE
     Indication: MENTAL DISORDER
     Dosage: VARYING DOSES OF 03 AND 06 MG
     Route: 048
     Dates: start: 2008, end: 2011

REACTIONS (7)
  - Diabetes mellitus [Unknown]
  - Off label use [Unknown]
  - Gynaecomastia [Unknown]
  - Extrapyramidal disorder [Unknown]
  - Product use in unapproved indication [Unknown]
  - Hypothyroidism [Unknown]
  - Obesity [Unknown]

NARRATIVE: CASE EVENT DATE: 2005
